FAERS Safety Report 7830315-6 (Version None)
Quarter: 2011Q4

REPORT INFORMATION
  Report Type: 
  Country: None (occurrence: None)
  Receive Date: 20111021
  Receipt Date: 20111017
  Transmission Date: 20120403
  Serious: Yes (Hospitalization, Other)
  Sender: FDA-Public Use
  Company Number: US-BRISTOL-MYERS SQUIBB COMPANY-14339105

PATIENT
  Age: 53 Year
  Sex: Male
  Weight: 85 kg

DRUGS (3)
  1. ZOFRAN [Suspect]
  2. PERCOCET [Suspect]
  3. CISPLATIN [Suspect]
     Indication: HEAD AND NECK CANCER
     Dates: start: 20080818, end: 20080818

REACTIONS (16)
  - HYPOALBUMINAEMIA [None]
  - DEVICE INTOLERANCE [None]
  - OESOPHAGEAL OBSTRUCTION [None]
  - SKIN ULCER [None]
  - ABDOMINAL DISTENSION [None]
  - PAIN [None]
  - HYPOTENSION [None]
  - DEHYDRATION [None]
  - SEPSIS [None]
  - ABDOMINAL INFECTION [None]
  - STOMATITIS [None]
  - MALABSORPTION [None]
  - HYPERGLYCAEMIA [None]
  - DECREASED APPETITE [None]
  - VOMITING [None]
  - HYPOCALCAEMIA [None]
